FAERS Safety Report 13642148 (Version 2)
Quarter: 2019Q2

REPORT INFORMATION
  Report Type: Spontaneous
  Country: CA (occurrence: CA)
  Receive Date: 20170612
  Receipt Date: 20190404
  Transmission Date: 20190711
  Serious: Yes (Other)
  Sender: FDA-Public Use
  Company Number: CA-PFIZER INC-2017247539

PATIENT
  Age: 22 Year
  Sex: Female

DRUGS (5)
  1. ABILIFY [Suspect]
     Active Substance: ARIPIPRAZOLE
     Dosage: ^20^, UNK
  2. XEROQUEL [Suspect]
     Active Substance: QUETIAPINE FUMARATE
     Dosage: UNK
  3. SEROQUEL [Suspect]
     Active Substance: QUETIAPINE FUMARATE
     Dosage: UNK
  4. ZELDOX [Suspect]
     Active Substance: ZIPRASIDONE
     Dosage: UNK
  5. ZYPREXA [Suspect]
     Active Substance: OLANZAPINE
     Dosage: UNK

REACTIONS (7)
  - Orthostatic hypertension [Unknown]
  - Extrapyramidal disorder [Unknown]
  - Sexual dysfunction [Unknown]
  - Sedation [Unknown]
  - Blood prolactin abnormal [Unknown]
  - Cardiometabolic syndrome [Unknown]
  - Diabetes mellitus [Unknown]
